FAERS Safety Report 15755584 (Version 1)
Quarter: 2018Q4

REPORT INFORMATION
  Report Type: Spontaneous
  Country: US (occurrence: US)
  Receive Date: 20181224
  Receipt Date: 20181224
  Transmission Date: 20190205
  Serious: No
  Sender: FDA-Public Use
  Company Number: PHEH2018US053174

PATIENT
  Sex: Male

DRUGS (1)
  1. VEREGEN [Suspect]
     Active Substance: SINECATECHINS
     Indication: ANOGENITAL WARTS
     Dosage: UNK
     Route: 061

REACTIONS (2)
  - Genital swelling [Unknown]
  - Balanoposthitis [Unknown]
